FAERS Safety Report 24711740 (Version 2)
Quarter: 2025Q1

REPORT INFORMATION
  Report Type: Spontaneous
  Country: US (occurrence: US)
  Receive Date: 20241209
  Receipt Date: 20250311
  Transmission Date: 20250409
  Serious: No
  Sender: SPRINGWORKS THERAPEUTIC
  Company Number: US-SPRINGWORKS THERAPEUTICS-SW-002115

PATIENT
  Sex: Female

DRUGS (2)
  1. OGSIVEO [Suspect]
     Active Substance: NIROGACESTAT HYDROBROMIDE
     Indication: Product used for unknown indication
     Dosage: 100 MILLIGRAM, BID
     Route: 048
  2. OGSIVEO [Suspect]
     Active Substance: NIROGACESTAT HYDROBROMIDE
     Dosage: 100 MILLIGRAM, QD
     Route: 048

REACTIONS (6)
  - Pruritus [Unknown]
  - Brain fog [Unknown]
  - Fatigue [Unknown]
  - Nausea [Unknown]
  - Intentional underdose [Unknown]
  - Treatment noncompliance [Unknown]
